FAERS Safety Report 9219166 (Version 1)
Quarter: 2013Q2

REPORT INFORMATION
  Report Type: Spontaneous
  Country: US (occurrence: US)
  Receive Date: 20130409
  Receipt Date: 20130409
  Transmission Date: 20140414
  Serious: Yes (Other)
  Sender: FDA-Public Use
  Company Number: US-ELI_LILLY_AND_COMPANY-US201304000110

PATIENT
  Sex: Male

DRUGS (3)
  1. AXIRON [Suspect]
     Dosage: 60 MG, UNKNOWN
     Dates: start: 201207, end: 201210
  2. ASPIRIN [Concomitant]
     Indication: PERIPHERAL VASCULAR DISORDER
     Dosage: UNK, QD
  3. IMDUR [Concomitant]
     Indication: PERIPHERAL VASCULAR DISORDER

REACTIONS (1)
  - Myocardial infarction [Unknown]
